FAERS Safety Report 10143554 (Version 2)
Quarter: 2014Q2

REPORT INFORMATION
  Report Type: Spontaneous
  Country: TR (occurrence: TR)
  Receive Date: 20140430
  Receipt Date: 20140506
  Transmission Date: 20141212
  Serious: Yes (Hospitalization)
  Sender: FDA-Public Use
  Company Number: TR-ABBVIE-14P-161-1231736-00

PATIENT
  Age: 66 Year
  Sex: Male

DRUGS (4)
  1. SODIUM VALPROATE [Suspect]
     Indication: MIGRAINE
  2. PROPRANOLOL HYDROCHLORIDE [Suspect]
     Indication: MIGRAINE
  3. AMITRIPTYLINE [Suspect]
     Indication: MIGRAINE
  4. TOPIRAMATE [Suspect]
     Indication: MIGRAINE

REACTIONS (4)
  - Cognitive disorder [Recovered/Resolved]
  - Confusional state [Unknown]
  - Off label use [Unknown]
  - Off label use [Unknown]
